FAERS Safety Report 18664688 (Version 2)
Quarter: 2021Q2

REPORT INFORMATION
  Report Type: Report from Study
  Country: BR (occurrence: BR)
  Receive Date: 20201225
  Receipt Date: 20210422
  Transmission Date: 20210717
  Serious: Yes (Other)
  Sender: FDA-Public Use
  Company Number: PHHY2018BR044587

PATIENT
  Age: 29 Year
  Sex: Female
  Weight: 88 kg

DRUGS (4)
  1. COSENTYX [Suspect]
     Active Substance: SECUKINUMAB
     Indication: PSORIATIC ARTHROPATHY
     Dosage: 150 MG, QW
     Route: 058
     Dates: start: 20180515
  2. COSENTYX [Suspect]
     Active Substance: SECUKINUMAB
     Dosage: UNK
     Route: 065
     Dates: start: 20190817
  3. COSENTYX [Suspect]
     Active Substance: SECUKINUMAB
     Dosage: UNK
     Route: 065
     Dates: start: 20200217
  4. COSENTYX [Suspect]
     Active Substance: SECUKINUMAB
     Dosage: 150 MG, UNKNOWN
     Route: 065
     Dates: start: 20180521

REACTIONS (22)
  - Incorrect dose administered [Unknown]
  - Device issue [Unknown]
  - Pain [Recovering/Resolving]
  - Nasopharyngitis [Unknown]
  - Drug ineffective [Unknown]
  - Oropharyngeal discomfort [Unknown]
  - Malaise [Recovering/Resolving]
  - Influenza [Recovered/Resolved]
  - Tuberculosis [Unknown]
  - Pyrexia [Unknown]
  - Pruritus [Unknown]
  - Catarrh [Not Recovered/Not Resolved]
  - Dyspnoea [Not Recovered/Not Resolved]
  - Diarrhoea [Recovered/Resolved]
  - Psoriatic arthropathy [Unknown]
  - Arthropathy [Recovering/Resolving]
  - Joint dislocation [Recovering/Resolving]
  - Inappropriate schedule of product administration [Unknown]
  - Arthritis [Recovering/Resolving]
  - Influenza [Recovered/Resolved]
  - Cough [Unknown]
  - Injection site pain [Recovering/Resolving]

NARRATIVE: CASE EVENT DATE: 20190313
